FAERS Safety Report 10097423 (Version 2)
Quarter: 2014Q2

REPORT INFORMATION
  Report Type: Spontaneous
  Country: US (occurrence: US)
  Receive Date: 20140423
  Receipt Date: 20140506
  Transmission Date: 20141212
  Serious: No
  Sender: FDA-Public Use
  Company Number: US-BAXTER-2014BAX018877

PATIENT
  Age: 62 Year
  Sex: Female

DRUGS (5)
  1. DIANEAL LOW CALCIUM [Suspect]
     Indication: RENAL FAILURE CHRONIC
     Route: 033
     Dates: start: 201403
  2. DIANEAL LOW CALCIUM [Suspect]
     Route: 033
  3. DIANEAL LOW CALCIUM [Suspect]
     Indication: RENAL FAILURE CHRONIC
     Route: 033
     Dates: start: 201403
  4. DIANEAL LOW CALCIUM [Suspect]
     Route: 033
  5. CEPHALEXIN [Suspect]
     Indication: CATHETER SITE INFLAMMATION
     Route: 048
     Dates: start: 201403, end: 201404

REACTIONS (4)
  - Gastroenteritis viral [Recovered/Resolved]
  - Catheter site inflammation [Recovered/Resolved]
  - Incorrect drug administration duration [Recovered/Resolved]
  - Diarrhoea [Recovered/Resolved]
